FAERS Safety Report 5140157-0 (Version None)
Quarter: 2006Q4

REPORT INFORMATION
  Report Type: 
  Country: None (occurrence: None)
  Receive Date: 20061024
  Receipt Date: 20061004
  Transmission Date: 20070319
  Serious: Yes (Hospitalization)
  Sender: FDA-Public Use
  Company Number: US200610000982

PATIENT
  Age: 46 Year
  Sex: Female

DRUGS (6)
  1. FORTEO [Suspect]
     Indication: OSTEOPOROSIS
     Dates: start: 20060501, end: 20060901
  2. FORTEO [Suspect]
     Indication: OSTEOPOROSIS
     Dates: start: 20060927
  3. IMITREX ^GLAXO^ (SUMATRIPTAN) [Concomitant]
  4. FIORICET [Concomitant]
  5. SKELAXIN [Concomitant]
  6. AMITRIPTYLINE HCL [Concomitant]

REACTIONS (4)
  - HYSTERECTOMY [None]
  - INJECTION SITE BRUISING [None]
  - PHARMACEUTICAL PRODUCT COMPLAINT [None]
  - SOMNOLENCE [None]
